APPROVED DRUG PRODUCT: XARTEMIS XR
Active Ingredient: ACETAMINOPHEN; OXYCODONE HYDROCHLORIDE
Strength: 325MG;7.5MG **Federal Register determination that product was not discontinued or withdrawn for safety or effectiveness reasons**
Dosage Form/Route: TABLET, EXTENDED RELEASE;ORAL
Application: N204031 | Product #001
Applicant: MALLINCKRODT INC
Approved: Mar 11, 2014 | RLD: Yes | RS: No | Type: DISCN

PATENTS:
Patent 8668929 | Expires: Mar 11, 2029
Patent 8377453 | Expires: Nov 19, 2029
Patent 8741885 | Expires: May 16, 2032
Patent 7976870 | Expires: Jun 1, 2027
Patent 9468636 | Expires: May 16, 2032
Patent 8372432 | Expires: Mar 11, 2029
Patent 9050335 | Expires: May 16, 2032
Patent 8597681 | Expires: Dec 21, 2030
Patent 8980319 | Expires: Dec 21, 2030
Patent 8394408 | Expires: Mar 11, 2029
Patent 8992975 | Expires: May 16, 2032
Patent 8658631 | Expires: May 16, 2032